FAERS Safety Report 7386080-2 (Version None)
Quarter: 2011Q1

REPORT INFORMATION
  Report Type: 
  Country: None (occurrence: None)
  Receive Date: 20110323
  Receipt Date: 20110318
  Transmission Date: 20110831
  Serious: Yes (Other)
  Sender: FDA-Public Use
  Company Number: USA/USA/11/0017755

PATIENT
  Age: 41 Year
  Sex: Female
  Weight: 91.173 kg

DRUGS (2)
  1. RANITIDINE TABLETS (RANITIDINE HYDROCHLORIDE) [Suspect]
     Indication: GASTROOESOPHAGEAL REFLUX DISEASE
     Dosage: ORAL
     Route: 048
     Dates: start: 20110315
  2. TENORMIN [Concomitant]

REACTIONS (2)
  - HYPERSENSITIVITY [None]
  - DYSPNOEA [None]
